FAERS Safety Report 7510508-8 (Version None)
Quarter: 2011Q2

REPORT INFORMATION
  Report Type: 
  Country: None (occurrence: None)
  Receive Date: 20110529
  Receipt Date: 20110518
  Transmission Date: 20111010
  Serious: Yes (Other)
  Sender: FDA-Public Use
  Company Number: FR-BRISTOL-MYERS SQUIBB COMPANY-15762370

PATIENT
  Age: 65 Year
  Sex: Male

DRUGS (1)
  1. SPRYCEL [Suspect]
     Indication: CHRONIC MYELOID LEUKAEMIA
     Dosage: DURATION OF THERAPY:3 TO 4 MONTHS  DOSE REDUCED

REACTIONS (4)
  - PLEURAL EFFUSION [None]
  - GAMMA-GLUTAMYLTRANSFERASE INCREASED [None]
  - ASCITES [None]
  - PORTAL HYPERTENSION [None]
